FAERS Safety Report 24050459 (Version 1)
Quarter: 2024Q3

REPORT INFORMATION
  Report Type: Spontaneous
  Country: AT (occurrence: AT)
  Receive Date: 20240704
  Receipt Date: 20240704
  Transmission Date: 20241016
  Serious: Yes (Death, Other)
  Sender: CLINIGEN
  Company Number: AT-CLINIGEN-AT-CLI-2024-010390

PATIENT

DRUGS (1)
  1. INTERFERON GAMMA [Suspect]
     Active Substance: INTERFERON GAMMA
     Indication: Product used for unknown indication

REACTIONS (1)
  - Death [Fatal]
